FAERS Safety Report 12612825 (Version 1)
Quarter: 2016Q3

REPORT INFORMATION
  Report Type: Report from Study
  Country: US (occurrence: US)
  Receive Date: 20160801
  Receipt Date: 20160801
  Transmission Date: 20161109
  Serious: Yes (Life-Threatening, Hospitalization, Other)
  Sender: FDA-Public Use
  Company Number: US-ROCHE-803681

PATIENT
  Age: 73 Year
  Sex: Female
  Weight: 53.3 kg

DRUGS (3)
  1. ETOPOSIDE. [Suspect]
     Active Substance: ETOPOSIDE
     Indication: SMALL CELL LUNG CANCER
     Dosage: DOSE:100 MG/M2/DAY IV OVER 2 HRS ON DAYS 1-3
     Route: 042
     Dates: start: 20100909, end: 20100915
  2. CISPLATIN. [Suspect]
     Active Substance: CISPLATIN
     Indication: SMALL CELL LUNG CANCER
     Dosage: DOSE: 75 MG/M2 IV OVER 2 HRS ON DAY 1
     Route: 042
     Dates: start: 20110909, end: 20110915
  3. VISMODEGIB [Suspect]
     Active Substance: VISMODEGIB
     Indication: SMALL CELL LUNG CANCER
     Route: 048
     Dates: start: 20100909, end: 20100914

REACTIONS (8)
  - Neutrophil count decreased [Recovered/Resolved]
  - Nausea [Recovered/Resolved]
  - Constipation [Recovered/Resolved]
  - White blood cell count decreased [Unknown]
  - Lipase increased [Unknown]
  - Abdominal pain [Recovered/Resolved]
  - Pain [Recovered/Resolved]
  - Vomiting [Recovered/Resolved]

NARRATIVE: CASE EVENT DATE: 20100916
